FAERS Safety Report 7770996-9 (Version None)
Quarter: 2011Q3

REPORT INFORMATION
  Report Type: 
  Country: None (occurrence: None)
  Receive Date: 20110922
  Receipt Date: 20100816
  Transmission Date: 20111222
  Serious: No
  Sender: FDA-Public Use
  Company Number: US-ASTRAZENECA-2010SE38309

PATIENT
  Age: 34 Year
  Sex: Male
  Weight: 105.7 kg

DRUGS (8)
  1. PREVACID [Concomitant]
     Indication: GASTROOESOPHAGEAL REFLUX DISEASE
  2. SEROQUEL XR [Suspect]
     Route: 048
  3. CYMBALTA [Concomitant]
  4. LISINOPRIL [Concomitant]
     Indication: HYPERTENSION
  5. DEPAKENE [Concomitant]
  6. LOVAZA [Concomitant]
     Indication: BLOOD TRIGLYCERIDES ABNORMAL
  7. SEROQUEL XR [Suspect]
     Indication: BIPOLAR DISORDER
     Route: 048
     Dates: start: 20100701
  8. BENZODIAZEPINE [Concomitant]
     Indication: PANIC DISORDER

REACTIONS (3)
  - ERECTILE DYSFUNCTION [None]
  - SEDATION [None]
  - WEIGHT INCREASED [None]
